FAERS Safety Report 8116480-4 (Version None)
Quarter: 2012Q1

REPORT INFORMATION
  Report Type: 
  Country: None (occurrence: None)
  Receive Date: 20120124
  Receipt Date: 20120106
  Transmission Date: 20120608
  Serious: Yes (Hospitalization)
  Sender: FDA-Public Use
  Company Number: WSDF_00709

PATIENT
  Sex: Female

DRUGS (1)
  1. WINRHO SDF LIQUID [Suspect]
     Indication: IDIOPATHIC THROMBOCYTOPENIC PURPURA
     Dosage: (INTARVENOUS (NOT OTHERWISE SPECIFIED)
     Route: 042
     Dates: start: 20080131, end: 20080131

REACTIONS (19)
  - FATIGUE [None]
  - CRYING [None]
  - HAEMODIALYSIS [None]
  - PLATELET COUNT DECREASED [None]
  - CHROMATURIA [None]
  - BACK PAIN [None]
  - NAUSEA [None]
  - DEPRESSION [None]
  - AMNESIA [None]
  - BLOOD BILIRUBIN INCREASED [None]
  - FLANK PAIN [None]
  - RENAL FAILURE ACUTE [None]
  - HAEMOLYSIS [None]
  - HAEMATURIA [None]
  - PYREXIA [None]
  - YELLOW SKIN [None]
  - CHILLS [None]
  - BLOOD PRESSURE INCREASED [None]
  - HAEMOGLOBIN DECREASED [None]
